FAERS Safety Report 8855697 (Version 1)
Quarter: 2012Q4

REPORT INFORMATION
  Report Type: Spontaneous
  Country: US (occurrence: None)
  Receive Date: 20121019
  Receipt Date: 20121019
  Transmission Date: 20130627
  Serious: No
  Sender: FDA-Public Use
  Company Number: None

PATIENT
  Sex: Male

DRUGS (2)
  1. SINGULAIR [Suspect]
     Indication: ASTHMA
     Route: 048
     Dates: start: 20120821
  2. SINGULAIR [Suspect]
     Indication: ALLERGIC RHINITIS
     Route: 048
     Dates: start: 20120821

REACTIONS (5)
  - Product substitution issue [None]
  - Nervous system disorder [None]
  - Depression [None]
  - Affective disorder [None]
  - Suicidal ideation [None]
